FAERS Safety Report 21157618 (Version 1)
Quarter: 2022Q3

REPORT INFORMATION
  Report Type: Spontaneous
  Country: US (occurrence: US)
  Receive Date: 20220801
  Receipt Date: 20220801
  Transmission Date: 20221027
  Serious: Yes (Hospitalization)
  Sender: FDA-Public Use
  Company Number: US-MYLANLABS-2022M1082028

PATIENT
  Age: 5 Decade
  Sex: Female

DRUGS (2)
  1. CHLORTHALIDONE [Suspect]
     Active Substance: CHLORTHALIDONE
     Indication: Product used for unknown indication
     Dosage: 25 MILLIGRAM, QD
     Route: 048
  2. VITAMIN D2 [Suspect]
     Active Substance: ERGOCALCIFEROL
     Indication: Vitamin supplementation
     Dosage: UNK (50000 UNITS) QD
     Route: 065

REACTIONS (4)
  - Calciphylaxis [Recovering/Resolving]
  - Hypervitaminosis [Recovered/Resolved]
  - Fat necrosis [Recovered/Resolved]
  - Skin lesion [Recovering/Resolving]
